FAERS Safety Report 6177106-2 (Version None)
Quarter: 2009Q2

REPORT INFORMATION
  Report Type: 
  Country: None (occurrence: None)
  Receive Date: 20090430
  Receipt Date: 20090430
  Transmission Date: 20091009
  Serious: No
  Sender: FDA-Public Use
  Company Number: None

PATIENT
  Age: 87 Year
  Sex: Female
  Weight: 58.9 kg

DRUGS (21)
  1. LEVAQUIN [Suspect]
     Indication: RESPIRATORY TRACT INFECTION
     Dosage: 750 MG DAILY PO 1-2 WEEKS
     Route: 048
  2. VIT. D [Concomitant]
  3. BISACODYL [Concomitant]
  4. LORTAB [Concomitant]
  5. LACTULOSE [Concomitant]
  6. SENNA [Concomitant]
  7. SEROQUEL [Concomitant]
  8. VESICARE [Concomitant]
  9. PRILOSEC [Concomitant]
  10. ALAVERT [Concomitant]
  11. MULTIVITS [Concomitant]
  12. GLUCOSAMINE [Concomitant]
  13. LEVOTHYROXINE SODIUM [Concomitant]
  14. LIDOCAINE [Concomitant]
  15. CYMBALTA [Concomitant]
  16. VASOTEC [Concomitant]
  17. FIBERLAX [Concomitant]
  18. LASIX [Concomitant]
  19. VIT B-12 [Concomitant]
  20. ASPIRIN [Concomitant]
  21. CADUET [Concomitant]

REACTIONS (6)
  - CONVULSION [None]
  - HYPOGLYCAEMIA [None]
  - MENTAL STATUS CHANGES [None]
  - METABOLIC ENCEPHALOPATHY [None]
  - RESPIRATORY ARREST [None]
  - UNRESPONSIVE TO STIMULI [None]
